FAERS Safety Report 13989911 (Version 1)
Quarter: 2017Q3

REPORT INFORMATION
  Report Type: Spontaneous
  Country: FR (occurrence: FR)
  Receive Date: 20170920
  Receipt Date: 20170920
  Transmission Date: 20171128
  Serious: Yes (Life-Threatening, Hospitalization)
  Sender: FDA-Public Use
  Company Number: FR-PFIZER INC-2017402129

PATIENT
  Age: 53 Year
  Sex: Female

DRUGS (11)
  1. VINCRISTINE HOSPIRA [Suspect]
     Active Substance: VINCRISTINE
     Indication: B-CELL LYMPHOMA
     Dosage: UNK, CYCLIC
     Route: 042
     Dates: start: 20170810
  2. ARACYTINE [Suspect]
     Active Substance: CYTARABINE
     Indication: B-CELL LYMPHOMA
     Dosage: 40 MG, CYCLIC
     Route: 037
     Dates: start: 20170810
  3. ENDOXAN /00021101/ [Suspect]
     Active Substance: CYCLOPHOSPHAMIDE
     Indication: B-CELL LYMPHOMA
     Dosage: 595 MG, CYCLIC
     Route: 042
     Dates: start: 20170810
  4. METHYLPREDNISOLONE MYLAN /00049604/ [Concomitant]
     Active Substance: METHYLPREDNISOLONE HEMISUCCINATE
     Indication: B-CELL LYMPHOMA
  5. CEFTRIAXONE MYLAN [Suspect]
     Active Substance: CEFTRIAXONE
     Indication: URINARY TRACT INFECTION
     Dosage: 2 G, 1X/DAY
     Route: 041
     Dates: start: 20170805, end: 20170811
  6. CEFEPIME [Suspect]
     Active Substance: CEFEPIME HYDROCHLORIDE
     Indication: URINARY TRACT INFECTION
     Dosage: 2 G, 1X/DAY
     Route: 041
     Dates: start: 20170805, end: 20170811
  7. DEPO-MEDROL [Suspect]
     Active Substance: METHYLPREDNISOLONE ACETATE
     Indication: B-CELL LYMPHOMA
     Dosage: UNK, CYCLIC
     Route: 037
     Dates: start: 20170810
  8. CEFEPIME [Suspect]
     Active Substance: CEFEPIME HYDROCHLORIDE
     Dosage: 2 G, 3X/DAY
     Route: 041
     Dates: start: 20170813, end: 20170819
  9. METHYLPREDNISOLONE MYLAN /00049604/ [Concomitant]
     Active Substance: METHYLPREDNISOLONE HEMISUCCINATE
     Indication: PROPHYLAXIS
     Dosage: 120 MG, 3X/DAY
     Route: 042
     Dates: start: 20170803, end: 20170814
  10. METHOTREXATE (METHOTREXATE SODIUM) [Suspect]
     Active Substance: METHOTREXATE SODIUM
     Indication: B-CELL LYMPHOMA
     Dosage: 15 MG, CYCLIC
     Route: 037
     Dates: start: 20170810
  11. CORTANCYL [Suspect]
     Active Substance: PREDNISONE
     Indication: B-CELL LYMPHOMA
     Dosage: 120 MG, CYCLIC
     Route: 048
     Dates: start: 20170810, end: 20170814

REACTIONS (1)
  - Diabetic hyperosmolar coma [Recovered/Resolved]

NARRATIVE: CASE EVENT DATE: 20170814
